FAERS Safety Report 16922325 (Version 1)
Quarter: 2019Q4

REPORT INFORMATION
  Report Type: Spontaneous
  Country: JP (occurrence: JP)
  Receive Date: 20191016
  Receipt Date: 20191016
  Transmission Date: 20200122
  Serious: Yes (Other)
  Sender: FDA-Public Use
  Company Number: JP-EMD SERONO-9122987

PATIENT
  Age: 38 Year
  Sex: Female

DRUGS (1)
  1. GONAL-F [Suspect]
     Active Substance: FOLLITROPIN
     Indication: INFERTILITY
     Dosage: UNIT DOSE : 150 (UNIT UNSPECIFIED)
     Route: 058
     Dates: start: 20190725

REACTIONS (2)
  - Abdominal pain [Unknown]
  - Appendicitis [Unknown]

NARRATIVE: CASE EVENT DATE: 2019
